FAERS Safety Report 19721092 (Version 1)
Quarter: 2021Q3

REPORT INFORMATION
  Report Type: Report from Study
  Country: HK (occurrence: HK)
  Receive Date: 20210819
  Receipt Date: 20210819
  Transmission Date: 20211014
  Serious: Yes (Death)
  Sender: FDA-Public Use
  Company Number: HK-TAIHO ONCOLOGY  INC-JPTT210299

PATIENT
  Age: 80 Year
  Sex: Female
  Weight: 49 kg

DRUGS (11)
  1. SENNA 7.5MG [Concomitant]
     Indication: CONSTIPATION
     Dosage: AT NIGHT WHEN NECESSARY
     Route: 048
     Dates: start: 20210728
  2. MEGESTROL ACETATE 40MG [Concomitant]
     Indication: DECREASED APPETITE
  3. TARGIN 10MG/5MG [Concomitant]
     Active Substance: NALOXONE HYDROCHLORIDE\OXYCODONE HYDROCHLORIDE
     Indication: PAIN
     Dosage: 10MG/5ML
     Route: 048
     Dates: start: 20210728
  4. BROMHEXINE HCL 8MG [Concomitant]
     Indication: COUGH
     Route: 048
     Dates: start: 20210728
  5. PHOLOCODINE 5MG/ML [Concomitant]
     Indication: COUGH
     Route: 048
     Dates: start: 20210728
  6. ACETYLCYSTENINE 200MG/SACHNET [Concomitant]
     Indication: CHEST DISCOMFORT
     Route: 048
     Dates: start: 20210728
  7. AQUEOUS 100G [Concomitant]
     Indication: DRY SKIN
     Dosage: 100?200G
     Route: 061
     Dates: start: 20210728
  8. CHLORPHENIRAMINE MALEATE 4MG [Concomitant]
     Indication: HYPERSENSITIVITY
     Dosage: THREE TIMES DAILY WHEN NECESSARY
     Route: 048
     Dates: start: 20210728
  9. LONSURF [Suspect]
     Active Substance: TIPIRACIL HYDROCHLORIDE\TRIFLURIDINE
     Indication: PANCREATIC CARCINOMA
     Dosage: Q4W, CYCLE 1?4
     Route: 048
     Dates: start: 20210315, end: 20210712
  10. MEGESTROL ACETATE 40MG [Concomitant]
     Indication: WEIGHT DECREASED
     Route: 048
     Dates: start: 20210728
  11. CROTAMITON 10% 20G [Concomitant]
     Indication: ACARODERMATITIS
     Dosage: TWICE DAILY WHEN NECESSARY
     Route: 061
     Dates: start: 20210728

REACTIONS (1)
  - Cardiac arrest [Fatal]

NARRATIVE: CASE EVENT DATE: 20210801
